FAERS Safety Report 17513872 (Version 1)
Quarter: 2020Q1

REPORT INFORMATION
  Report Type: Spontaneous
  Country: FR (occurrence: FR)
  Receive Date: 20200308
  Receipt Date: 20200308
  Transmission Date: 20200409
  Serious: Yes (Hospitalization)
  Sender: FDA-Public Use
  Company Number: FR-TEVA-2020-FR-1195615

PATIENT
  Age: 73 Year
  Sex: Male
  Weight: 77.5 kg

DRUGS (12)
  1. FLAMMACERIUM [Concomitant]
     Indication: WOUND
     Route: 046
     Dates: start: 20200113, end: 20200202
  2. AMIKLIN [Concomitant]
     Active Substance: AMIKACIN SULFATE
     Indication: PSEUDOMONAS INFECTION
     Dosage: 2100 MG
     Route: 041
     Dates: start: 20200112, end: 20200115
  3. ZERBAXA [Suspect]
     Active Substance: CEFTOLOZANE SULFATE\TAZOBACTAM SODIUM
     Indication: PSEUDOMONAS INFECTION
     Dosage: 6 G
     Route: 041
     Dates: start: 20200112, end: 20200128
  4. SERESTA [Concomitant]
     Active Substance: OXAZEPAM
     Indication: ANXIETY
     Dosage: 30 MG
     Route: 048
  5. EFFEXOR [Concomitant]
     Active Substance: VENLAFAXINE HYDROCHLORIDE
     Indication: DEPRESSION
     Dosage: 75 MG
     Route: 048
  6. DOLIPRANE [Concomitant]
     Active Substance: ACETAMINOPHEN
     Indication: PAIN
     Dosage: 3 G
     Route: 048
  7. TARDYFERON [Concomitant]
     Active Substance: FERROUS SULFATE
     Indication: IRON DEFICIENCY
     Dosage: 240 MG
     Route: 048
  8. TERCIAN [Concomitant]
     Active Substance: CYAMEMAZINE
     Indication: ANXIETY
     Dosage: 20 GTT
     Route: 048
  9. OXYNORM [Concomitant]
     Active Substance: OXYCODONE HYDROCHLORIDE
     Indication: PAIN
     Dosage: 20 MG
     Route: 048
  10. CIPROFLOXACINE [Suspect]
     Active Substance: CIPROFLOXACIN
     Indication: PSEUDOMONAS INFECTION
     Dosage: 2250 MG
     Route: 048
     Dates: start: 20200115, end: 20200128
  11. SPECIAFOLDINE [Concomitant]
     Active Substance: FOLIC ACID
     Indication: IRON DEFICIENCY
     Dosage: 5 MG
     Route: 048
  12. MOVICOL [Concomitant]
     Active Substance: POLYETHYLENE GLYCOL 3350\POTASSIUM CHLORIDE\SODIUM BICARBONATE\SODIUM CHLORIDE
     Indication: CONSTIPATION
     Route: 048

REACTIONS (2)
  - Thrombocytopenia [Recovered/Resolved]
  - Lymphopenia [Not Recovered/Not Resolved]

NARRATIVE: CASE EVENT DATE: 20200113
